FAERS Safety Report 5093648-5 (Version None)
Quarter: 2006Q3

REPORT INFORMATION
  Report Type: 
  Country: None (occurrence: None)
  Receive Date: 20060829
  Receipt Date: 20060815
  Transmission Date: 20061208
  Serious: Yes (Other)
  Sender: FDA-Public Use
  Company Number: T200600905

PATIENT
  Age: 55 Year
  Sex: Female

DRUGS (8)
  1. OPTIMARK [Suspect]
     Indication: NUCLEAR MAGNETIC RESONANCE IMAGING
     Dosage: SEE IMAGE
     Dates: start: 20051006, end: 20051006
  2. OPTIMARK [Suspect]
     Indication: NUCLEAR MAGNETIC RESONANCE IMAGING
     Dosage: SEE IMAGE
     Dates: start: 20051011, end: 20051011
  3. OPTIMARK [Suspect]
     Indication: NUCLEAR MAGNETIC RESONANCE IMAGING
     Dosage: SEE IMAGE
     Dates: start: 20051203, end: 20051203
  4. LEXAPRO (ESCITALOPRAM OXALATE) [Concomitant]
  5. QUININE SULFATE [Concomitant]
  6. (PARACETAMOL, OXYCODONE HYDROCHLORIDE, OXYCODONE TEREPHTHALATE) [Concomitant]
  7. SODIUM BICARBONATE IN PLASTIC CONTAINER [Concomitant]
  8. BENADRYL [Concomitant]

REACTIONS (1)
  - NEPHROGENIC FIBROSING DERMOPATHY [None]
